FAERS Safety Report 7915396-3 (Version None)
Quarter: 2011Q4

REPORT INFORMATION
  Report Type: 
  Country: None (occurrence: None)
  Receive Date: 20111115
  Receipt Date: 20111114
  Transmission Date: 20120403
  Serious: Yes (Death, Other)
  Sender: FDA-Public Use
  Company Number: PHHY2011US68107

PATIENT
  Sex: Male

DRUGS (5)
  1. ASPIRIN [Concomitant]
  2. LEVITRA [Concomitant]
  3. GILENYA [Suspect]
     Indication: MULTIPLE SCLEROSIS
     Dosage: 0.5 MG, QD
     Route: 048
     Dates: start: 20110627
  4. GILENYA [Suspect]
     Dosage: 0.5 MG, QD
     Route: 048
     Dates: start: 20110726
  5. CIALIS [Concomitant]

REACTIONS (20)
  - CARDIAC ARREST [None]
  - ASPARTATE AMINOTRANSFERASE INCREASED [None]
  - MUSCLE SPASMS [None]
  - CARDIAC TAMPONADE [None]
  - ARRHYTHMIA [None]
  - LYMPHOCYTE COUNT DECREASED [None]
  - NAUSEA [None]
  - MONOCYTE COUNT INCREASED [None]
  - VENTRICLE RUPTURE [None]
  - PYREXIA [None]
  - GAIT DISTURBANCE [None]
  - URINE ANALYSIS ABNORMAL [None]
  - MYOCARDIAL INFARCTION [None]
  - BRADYCARDIA [None]
  - MALAISE [None]
  - WHITE BLOOD CELL COUNT INCREASED [None]
  - BLOOD GLUCOSE INCREASED [None]
  - CULTURE URINE POSITIVE [None]
  - GASTROENTERITIS VIRAL [None]
  - NEUTROPHILIA [None]
